FAERS Safety Report 9685127 (Version 1)
Quarter: 2013Q4

REPORT INFORMATION
  Report Type: Spontaneous
  Country: US (occurrence: None)
  Receive Date: 20131111
  Receipt Date: 20131111
  Transmission Date: 20140711
  Serious: Yes (Disabling)
  Sender: FDA-Public Use
  Company Number: None

PATIENT
  Age: 56 Year
  Sex: Female
  Weight: 60.33 kg

DRUGS (2)
  1. TRAMADOL [Suspect]
     Indication: BACK PAIN
     Route: 048
  2. TRAMADOL 50 MG [Suspect]
     Indication: BACK PAIN
     Dosage: TAKE AS NEEDED
     Route: 048

REACTIONS (3)
  - Pain in extremity [None]
  - Product formulation issue [None]
  - Product substitution issue [None]
